FAERS Safety Report 23392108 (Version 1)
Quarter: 2024Q1

REPORT INFORMATION
  Report Type: Spontaneous
  Country: IE (occurrence: IE)
  Receive Date: 20240111
  Receipt Date: 20240111
  Transmission Date: 20240409
  Serious: Yes (Death, Other)
  Sender: FDA-Public Use
  Company Number: IE-AMGEN-IRLSP2024001763

PATIENT

DRUGS (1)
  1. BEVACIZUMAB [Suspect]
     Active Substance: BEVACIZUMAB
     Indication: Ovarian cancer
     Dosage: UNK
     Route: 065

REACTIONS (25)
  - Death [Fatal]
  - Gastrointestinal injury [Unknown]
  - Anastomotic leak [Unknown]
  - Dehiscence [Unknown]
  - Rectal discharge [Unknown]
  - Pancreatic leak [Unknown]
  - Small intestinal obstruction [Unknown]
  - Ovarian cancer metastatic [Unknown]
  - Lower respiratory tract infection [Unknown]
  - Gastrointestinal stoma complication [Unknown]
  - Wound infection [Unknown]
  - Pleural effusion [Unknown]
  - Pelvic abscess [Unknown]
  - Pancreatic fistula [Unknown]
  - Wound abscess [Unknown]
  - Pyelonephritis [Unknown]
  - Haemorrhage [Unknown]
  - Pulmonary embolism [Unknown]
  - Ileus [Unknown]
  - Myocardial infarction [Unknown]
  - Adverse event [Unknown]
  - Post procedural infection [Unknown]
  - Vaginal cuff dehiscence [Unknown]
  - Vesicoureteral reflux surgery [Unknown]
  - Ureteral stent insertion [Unknown]
